FAERS Safety Report 22095906 (Version 1)
Quarter: 2023Q1

REPORT INFORMATION
  Report Type: Spontaneous
  Country: IT (occurrence: IT)
  Receive Date: 20230315
  Receipt Date: 20230315
  Transmission Date: 20230418
  Serious: Yes (Other)
  Sender: FDA-Public Use
  Company Number: IT-002147023-NVSC2023IT055786

PATIENT

DRUGS (3)
  1. RUXOLITINIB [Suspect]
     Active Substance: RUXOLITINIB
     Indication: Polycythaemia vera
     Dosage: UNK
     Route: 065
  2. RUXOLITINIB [Suspect]
     Active Substance: RUXOLITINIB
     Indication: Janus kinase 2 mutation
     Dosage: UNK
     Route: 065
     Dates: start: 2019
  3. RUXOLITINIB [Suspect]
     Active Substance: RUXOLITINIB
     Dosage: UNK
     Route: 065

REACTIONS (7)
  - Haemorrhagic diathesis [Recovered/Resolved]
  - Leukocytosis [Recovered/Resolved]
  - Thrombocytopenia [Recovered/Resolved]
  - Iron deficiency anaemia [Recovered/Resolved]
  - Leukocytosis [Recovered/Resolved]
  - Splenic infarction [Unknown]
  - Splenomegaly [Unknown]
